FAERS Safety Report 21555233 (Version 2)
Quarter: 2022Q4

REPORT INFORMATION
  Report Type: Spontaneous
  Country: BR (occurrence: BR)
  Receive Date: 20221104
  Receipt Date: 20221108
  Transmission Date: 20230112
  Serious: Yes (Other)
  Sender: FDA-Public Use
  Company Number: BR-TAKEDA-2022TUS081795

PATIENT
  Age: 35 Year

DRUGS (1)
  1. DEXILANT [Suspect]
     Active Substance: DEXLANSOPRAZOLE
     Indication: Product used for unknown indication
     Dosage: UNK
     Route: 065

REACTIONS (5)
  - Hepatotoxicity [Unknown]
  - Malaise [Unknown]
  - Ocular icterus [Unknown]
  - Transaminases increased [Recovered/Resolved]
  - Gastrooesophageal reflux disease [Unknown]
